FAERS Safety Report 7397046-0 (Version None)
Quarter: 2011Q2

REPORT INFORMATION
  Report Type: 
  Country: None (occurrence: None)
  Receive Date: 20110406
  Receipt Date: 20110404
  Transmission Date: 20111010
  Serious: Yes (Other)
  Sender: FDA-Public Use
  Company Number: US-CEPHALON-US023101

PATIENT
  Sex: Male
  Weight: 82 kg

DRUGS (3)
  1. FENTORA [Suspect]
     Indication: BACK PAIN
     Route: 002
     Dates: start: 20060101, end: 20080321
  2. AVINZA [Concomitant]
     Indication: PAIN
     Route: 048
     Dates: start: 20030101
  3. ROXICODONE [Concomitant]
     Indication: BREAKTHROUGH PAIN
     Dosage: EVERY 4-6 HOURS PRN
     Route: 048

REACTIONS (2)
  - TOOTH LOSS [None]
  - TOOTH FRACTURE [None]
